FAERS Safety Report 5651807-4 (Version None)
Quarter: 2008Q1

REPORT INFORMATION
  Report Type: 
  Country: None (occurrence: None)
  Receive Date: 20080305
  Receipt Date: 20080225
  Transmission Date: 20080703
  Serious: Yes (Other)
  Sender: FDA-Public Use
  Company Number: US-PFIZER INC-2007098229

PATIENT
  Sex: Male
  Weight: 70.454 kg

DRUGS (2)
  1. VIAGRA [Suspect]
     Indication: ERECTILE DYSFUNCTION
     Dates: start: 20050101, end: 20071118
  2. LIPITOR [Concomitant]

REACTIONS (1)
  - GLOBAL AMNESIA [None]
